FAERS Safety Report 4934907-3 (Version None)
Quarter: 2006Q1

REPORT INFORMATION
  Report Type: 
  Country: None (occurrence: None)
  Receive Date: 20060303
  Receipt Date: 20060303
  Transmission Date: 20060701
  Serious: Yes (Other)
  Sender: FDA-Public Use
  Company Number: None

PATIENT
  Sex: Female
  Weight: 77.1115 kg

DRUGS (4)
  1. EFFEXOR [Suspect]
     Indication: DEPRESSION
     Dosage: 75 MG DAILY PO
     Route: 048
     Dates: start: 20051101, end: 20060215
  2. ZELNORM [Suspect]
     Indication: IRRITABLE BOWEL SYNDROME
     Dosage: 2 MG TWICE A DAY PO
     Route: 048
     Dates: start: 20060101, end: 20060212
  3. SYNTHROID [Concomitant]
  4. ALLEGRA [Concomitant]

REACTIONS (5)
  - ABDOMINAL PAIN [None]
  - BACK PAIN [None]
  - COLITIS ISCHAEMIC [None]
  - CONSTIPATION [None]
  - IRRITABLE BOWEL SYNDROME [None]
